FAERS Safety Report 17204794 (Version 1)
Quarter: 2019Q4

REPORT INFORMATION
  Report Type: Spontaneous
  Country: PL (occurrence: PL)
  Receive Date: 20191226
  Receipt Date: 20191226
  Transmission Date: 20200122
  Serious: Yes (Other)
  Sender: FDA-Public Use
  Company Number: PL-BAXTER-2019BAX025848

PATIENT
  Age: 68 Year
  Sex: Male

DRUGS (8)
  1. FUROSEMIDE NORAMEDA 10 MG/ML ROZTWOR DO WSTRZYKIWAN/ DO INFUZJI [Suspect]
     Active Substance: FUROSEMIDE
     Indication: PRODUCT USED FOR UNKNOWN INDICATION
     Dosage: 40 MG, 2X PER DAY, (IN THE MORNING AND AFTER NOON)
     Route: 065
  2. POTASSIUM [Suspect]
     Active Substance: POTASSIUM
     Indication: PRODUCT USED FOR UNKNOWN INDICATION
     Dosage: 1 DF, 2X PER DAY, (IN THE MORNING AND IN THE EVENING)
     Route: 065
  3. CARVEDILOL. [Suspect]
     Active Substance: CARVEDILOL
     Indication: PRODUCT USED FOR UNKNOWN INDICATION
     Dosage: 12.5 MG, 2X PER DAY, (MORNING AND EVENING)
     Route: 065
  4. ROSUVASTATIN. [Suspect]
     Active Substance: ROSUVASTATIN
     Indication: PRODUCT USED FOR UNKNOWN INDICATION
     Dosage: 20 MG, 1X PER DAY, (EVENING)
     Route: 065
  5. TORASEMIDE [Suspect]
     Active Substance: TORSEMIDE
     Indication: PRODUCT USED FOR UNKNOWN INDICATION
     Route: 065
  6. MAGNESIUM CITRATE. [Suspect]
     Active Substance: MAGNESIUM CITRATE
     Indication: PRODUCT USED FOR UNKNOWN INDICATION
     Dosage: 1 DF, 1X PER DAY, (MORNING)
     Route: 065
  7. EPLERENONE. [Suspect]
     Active Substance: EPLERENONE
     Indication: PRODUCT USED FOR UNKNOWN INDICATION
     Dosage: 25 MG, 1X PER DAY, (MORNING)
     Route: 065
  8. RAMIPRIL. [Suspect]
     Active Substance: RAMIPRIL
     Indication: PRODUCT USED FOR UNKNOWN INDICATION
     Dosage: 10 MG, 1X PER DAY, (IN THE MORNING)
     Route: 065

REACTIONS (7)
  - Cardiac failure [Unknown]
  - Treatment noncompliance [Unknown]
  - Peripheral swelling [Unknown]
  - Blood pressure inadequately controlled [Unknown]
  - Dyspnoea [Unknown]
  - Urine output increased [Unknown]
  - Fatigue [Unknown]
